FAERS Safety Report 9457385 (Version 8)
Quarter: 2014Q2

REPORT INFORMATION
  Report Type: Report from Study
  Country: DE (occurrence: None)
  Receive Date: 20130812
  Receipt Date: 20140520
  Transmission Date: 20141212
  Serious: Yes (Death, Hospitalization)
  Sender: FDA-Public Use
  Company Number: DE-JNJFOC-20130801079

PATIENT
  Age: 73 Year
  Sex: Male

DRUGS (3)
  1. DECITABINE (DECITABINE) LYOPHILIZED POWDER [Suspect]
     Indication: ACUTE MYELOID LEUKAEMIA
     Route: 042
     Dates: start: 20130715, end: 20130719
  2. POSACONAZOLE (POSACONAZOLE) [Concomitant]
  3. CIPROFLOXACIN (CIPROFLOXACIN) [Concomitant]

REACTIONS (6)
  - Thrombocytopenia [None]
  - Anaemia [None]
  - General physical health deterioration [None]
  - Blood lactate dehydrogenase increased [None]
  - Acute myeloid leukaemia [None]
  - Disease progression [None]
